FAERS Safety Report 11329594 (Version 1)
Quarter: 2015Q3

REPORT INFORMATION
  Report Type: Spontaneous
  Country: US (occurrence: US)
  Receive Date: 20150803
  Receipt Date: 20150803
  Transmission Date: 20151125
  Serious: Yes (Disabling, Other)
  Sender: FDA-Public Use
  Company Number: US-AUROBINDO-AUR-APL-2015-06569

PATIENT
  Age: 33 Year
  Sex: Female

DRUGS (4)
  1. LEVOFLOXACIN TABLETS 750MG [Suspect]
     Active Substance: LEVOFLOXACIN
     Indication: BRONCHITIS
  2. LEVOFLOXACIN TABLETS 750MG [Suspect]
     Active Substance: LEVOFLOXACIN
     Indication: LUNG DISORDER
     Dosage: 750 MG, ONCE A DAY
     Route: 065
     Dates: start: 20150321, end: 20150328
  3. LEVOFLOXACIN TABLETS 750MG [Suspect]
     Active Substance: LEVOFLOXACIN
     Indication: PNEUMONIA
  4. PREDNISONE. [Concomitant]
     Active Substance: PREDNISONE
     Indication: PRODUCT USED FOR UNKNOWN INDICATION
     Route: 065

REACTIONS (2)
  - Joint swelling [Not Recovered/Not Resolved]
  - Abasia [Not Recovered/Not Resolved]

NARRATIVE: CASE EVENT DATE: 20150328
